FAERS Safety Report 8892298 (Version 2)
Quarter: 2012Q4

REPORT INFORMATION
  Report Type: Spontaneous
  Country: GB (occurrence: None)
  Receive Date: 20121101
  Receipt Date: 20121108
  Transmission Date: 20130627
  Serious: Yes (Hospitalization)
  Sender: FDA-Public Use
  Company Number: GER/UKI/12/0026250

PATIENT
  Age: 43 Year
  Sex: Female

DRUGS (5)
  1. IRBESARTAN [Suspect]
     Indication: DRUG USE FOR UNKNOWN INDICATION
  2. CITALOPRAM (CITALOPRAM) [Suspect]
     Indication: DRUG USE FOR UNKNOWN INDICATION
  3. DIAZEPAM [Suspect]
     Indication: DRUG USE FOR UNKNOWN INDICATION
  4. GABAPENTIN [Suspect]
     Indication: DRUG USE FOR UNKNOWN INDICATION
  5. DILTIAZEM [Suspect]
     Indication: DRUG USE FOR UNKNOWN INDICATION

REACTIONS (10)
  - Intentional overdose [None]
  - Hypotension [None]
  - Bradycardia [None]
  - Atrioventricular block complete [None]
  - Pulmonary oedema [None]
  - Hypoxia [None]
  - Renal impairment [None]
  - Blood creatinine increased [None]
  - Left ventricular dysfunction [None]
  - Toxicity to various agents [None]
